FAERS Safety Report 22366067 (Version 1)
Quarter: 2023Q2

REPORT INFORMATION
  Report Type: Spontaneous
  Country: DE (occurrence: DE)
  Receive Date: 20230525
  Receipt Date: 20230525
  Transmission Date: 20230721
  Serious: Yes (Hospitalization, Other)
  Sender: FDA-Public Use
  Company Number: DE-IPSEN Group, Research and Development-2018-15171

PATIENT
  Age: 42 Year
  Sex: Male
  Weight: 97 kg

DRUGS (8)
  1. SOMATROPIN [Suspect]
     Active Substance: SOMATROPIN
     Dosage: 2 IU, 2X/DAY
     Route: 030
  2. TRENBOLONE ENANTHATE [Suspect]
     Active Substance: TRENBOLONE ENANTHATE
     Indication: Drug abuse
     Dosage: 100 MG, 1/WEEK
     Route: 030
  3. METHANDROSTENOLONE [Suspect]
     Active Substance: METHANDROSTENOLONE
     Indication: Drug abuse
     Dosage: 10 MG, 3X/DAY
     Route: 048
  4. TESTOSTERONE ENANTHATE [Suspect]
     Active Substance: TESTOSTERONE ENANTHATE
     Indication: Drug abuse
     Dosage: 250 MG, 2X/WEEK
     Route: 030
  5. BOLDENONE UNDECYLENATE [Suspect]
     Active Substance: BOLDENONE UNDECYLENATE
     Dosage: 200 MG, 2X/WEEK
     Route: 030
  6. HYDROCHLOROTHIAZIDE [Concomitant]
     Active Substance: HYDROCHLOROTHIAZIDE
     Indication: Hypertension
     Dosage: UNK
  7. SIMVASTATIN [Concomitant]
     Active Substance: SIMVASTATIN
     Dosage: UNK
  8. TELMISARTAN [Concomitant]
     Active Substance: TELMISARTAN
     Indication: Hypertension
     Dosage: UNK

REACTIONS (2)
  - Drug abuse [Unknown]
  - Focal segmental glomerulosclerosis [Not Recovered/Not Resolved]
